FAERS Safety Report 5060293-7 (Version None)
Quarter: 2006Q3

REPORT INFORMATION
  Report Type: 
  Country: None (occurrence: None)
  Receive Date: 20060720
  Receipt Date: 20060713
  Transmission Date: 20061208
  Serious: Yes (Death, Hospitalization)
  Sender: FDA-Public Use
  Company Number: 2006-01652

PATIENT
  Age: 68 Year
  Sex: Female
  Weight: 67 kg

DRUGS (9)
  1. VELCADE [Suspect]
     Indication: MULTIPLE MYELOMA
  2. MORPHINE [Concomitant]
  3. METOCLOPRAMIDE [Concomitant]
  4. OXYCONTIN [Concomitant]
  5. ASPIRIN [Concomitant]
  6. OXYCODONE (OXYCODONE) [Concomitant]
  7. ONDANSETRON [Concomitant]
  8. CITALOPRAM HYDROBROMIDE [Concomitant]
  9. PANTOPRAZOLE SODIUM [Concomitant]

REACTIONS (3)
  - INTERSTITIAL LUNG DISEASE [None]
  - PNEUMONIA [None]
  - PNEUMONITIS [None]
